FAERS Safety Report 8958420 (Version 1)
Quarter: 2012Q4

REPORT INFORMATION
  Report Type: Spontaneous
  Country: US (occurrence: None)
  Receive Date: 20121205
  Receipt Date: 20121205
  Transmission Date: 20130627
  Serious: No
  Sender: FDA-Public Use
  Company Number: None

PATIENT
  Sex: Female

DRUGS (1)
  1. LAMOTRIGINE 100 MG TEVA [Suspect]
     Indication: SEIZURE
     Dosage: 100 mg BID PO
     Route: 048
     Dates: start: 201203, end: 201209

REACTIONS (2)
  - Convulsion [None]
  - Condition aggravated [None]
